FAERS Safety Report 13369983 (Version 1)
Quarter: 2017Q1

REPORT INFORMATION
  Report Type: Spontaneous
  Country: MY (occurrence: MY)
  Receive Date: 20170324
  Receipt Date: 20170324
  Transmission Date: 20170429
  Serious: Yes (Other)
  Sender: FDA-Public Use
  Company Number: MY-PFIZER INC-2017123955

PATIENT

DRUGS (1)
  1. PROSTIN E2 [Suspect]
     Active Substance: DINOPROSTONE
     Indication: LABOUR INDUCTION
     Dosage: 3 MG, UNK
     Route: 064
     Dates: start: 2013

REACTIONS (1)
  - Bradycardia foetal [Unknown]

NARRATIVE: CASE EVENT DATE: 2013
